FAERS Safety Report 18655550 (Version 2)
Quarter: 2022Q2

REPORT INFORMATION
  Report Type: Spontaneous
  Country: IN (occurrence: IN)
  Receive Date: 20201223
  Receipt Date: 20220404
  Transmission Date: 20220720
  Serious: Yes (Hospitalization, Other)
  Sender: FDA-Public Use
  Company Number: IN-NOVARTISPH-NVSC2020IN334620

PATIENT
  Age: 26 Year
  Sex: Male

DRUGS (33)
  1. SIMULECT [Suspect]
     Active Substance: BASILIXIMAB
     Indication: Renal transplant
     Dosage: 20 MG, UNKNOWN (DAY ZERO)
     Route: 065
     Dates: start: 20201119
  2. SIMULECT [Suspect]
     Active Substance: BASILIXIMAB
     Dosage: UNK (DAY FOUR)
     Route: 065
     Dates: start: 20201123, end: 20201124
  3. SIMULECT [Suspect]
     Active Substance: BASILIXIMAB
     Dosage: 20 MG, OVER 6 HOURS MIDNIGHT
     Route: 042
  4. PIPERACILLIN AND TAZOBACTAM [Concomitant]
     Active Substance: PIPERACILLIN SODIUM\TAZOBACTAM SODIUM
     Indication: Product used for unknown indication
     Dosage: 2.25 G, BID
     Route: 065
     Dates: start: 20201118
  5. FENTANYL [Concomitant]
     Active Substance: FENTANYL
     Indication: Product used for unknown indication
     Dosage: UNK
     Route: 042
     Dates: start: 20201119
  6. MEROPENEM [Concomitant]
     Active Substance: MEROPENEM
     Indication: Product used for unknown indication
     Dosage: UNK
     Route: 065
     Dates: start: 20201122
  7. TARGOCID [Concomitant]
     Active Substance: TEICOPLANIN
     Indication: Product used for unknown indication
     Dosage: UNK
     Route: 065
     Dates: start: 20201122
  8. BIOMUS [Concomitant]
     Indication: Product used for unknown indication
     Dosage: 1 DOSAGE FORM, BID
     Route: 065
     Dates: start: 20201125
  9. BIOMUS [Concomitant]
     Dosage: 1 DOSAGE FORM, (5 MG), 10 CAPSULES
     Route: 065
  10. BIOMUS [Concomitant]
     Dosage: 1 DOSAGE FORM, (10 CAPSULES)
     Route: 065
  11. BIOMUS [Concomitant]
     Dosage: 1 DOSAGE FORM, (2 MG, CAPSULES)
     Route: 065
  12. METHYLPREDNISOLONE [Concomitant]
     Active Substance: METHYLPREDNISOLONE
     Indication: Product used for unknown indication
     Dosage: 500 MG, QD
     Route: 065
     Dates: start: 20201125
  13. ARIUM [Concomitant]
     Indication: Product used for unknown indication
     Dosage: UNK
     Route: 065
  14. LOXICARD [Concomitant]
     Indication: Product used for unknown indication
     Dosage: UNK
     Route: 065
  15. PREDNISOLONE [Concomitant]
     Active Substance: PREDNISOLONE
     Indication: Product used for unknown indication
     Dosage: UNK
     Route: 065
  16. ANAWIN [Concomitant]
     Indication: Product used for unknown indication
     Dosage: 1 DOSAGE FORM, (20 ML)
     Route: 065
  17. LASIX [Concomitant]
     Active Substance: FUROSEMIDE
     Indication: Product used for unknown indication
     Dosage: UNK
     Route: 065
  18. SUPRIDOL [Concomitant]
     Indication: Product used for unknown indication
     Dosage: UNK
     Route: 065
  19. PANTOSEC [Concomitant]
     Indication: Product used for unknown indication
     Dosage: UNK
     Route: 065
  20. LOX [Concomitant]
     Indication: Product used for unknown indication
     Dosage: UNK (JELLY)
     Route: 065
  21. LOX [Concomitant]
     Dosage: 1 DOSAGE FORM (30 ML), INJECTION
     Route: 065
  22. PENMER [Concomitant]
     Indication: Product used for unknown indication
     Dosage: UNK
     Route: 065
  23. AMANTA [Concomitant]
     Indication: Product used for unknown indication
     Dosage: UNK
     Route: 065
  24. MANNITOL [Concomitant]
     Active Substance: MANNITOL
     Indication: Product used for unknown indication
     Dosage: UNK
     Route: 065
  25. MINIPRESS [Concomitant]
     Active Substance: PRAZOSIN HYDROCHLORIDE
     Indication: Product used for unknown indication
     Dosage: UNK (30 TABS)
     Route: 065
  26. METOLAR [Concomitant]
     Indication: Product used for unknown indication
     Dosage: 1 DOSAGE FORM (25 UNITS: UNSPECIFIED)
     Route: 065
  27. METOPROLOL [Concomitant]
     Active Substance: METOPROLOL
     Indication: Product used for unknown indication
     Dosage: 1 DOSAGE FORM (25 UNITS: UNSPECIFIED), (30 TABLETS)
     Route: 065
  28. T PLANIN [Concomitant]
     Indication: Product used for unknown indication
     Dosage: UNK
     Route: 065
  29. ONDET [Concomitant]
     Indication: Product used for unknown indication
     Dosage: UNK
     Route: 065
  30. SEVOFLURANE [Concomitant]
     Active Substance: SEVOFLURANE
     Indication: Product used for unknown indication
     Dosage: UNK
     Route: 065
  31. AMLODIPINE BESYLATE [Concomitant]
     Active Substance: AMLODIPINE BESYLATE
     Indication: Product used for unknown indication
     Dosage: UNK, 30 TABLETS
     Route: 065
  32. PIPERACILLIN SODIUM\TAZOBACTAM SODIUM [Concomitant]
     Active Substance: PIPERACILLIN SODIUM\TAZOBACTAM SODIUM
     Indication: Product used for unknown indication
     Dosage: 1 DOSAGE FORM, (2.25 GM)
     Route: 065
  33. PIPERACILLIN SODIUM\TAZOBACTAM SODIUM [Concomitant]
     Active Substance: PIPERACILLIN SODIUM\TAZOBACTAM SODIUM
     Dosage: 1 DOSAGE FORM, (4.5 GM)
     Route: 065

REACTIONS (5)
  - Kidney transplant rejection [Unknown]
  - Haemoglobin decreased [Unknown]
  - Hypertension [Unknown]
  - Pyrexia [Unknown]
  - Constipation [Recovered/Resolved]

NARRATIVE: CASE EVENT DATE: 20201120
